FAERS Safety Report 5258821-1 (Version None)
Quarter: 2007Q1

REPORT INFORMATION
  Report Type: 
  Country: None (occurrence: None)
  Receive Date: 20070308
  Receipt Date: 20070228
  Transmission Date: 20070707
  Serious: Yes (Disabling)
  Sender: FDA-Public Use
  Company Number: US-ROCHE-444172

PATIENT
  Age: 58 Year
  Sex: Female
  Weight: 53.1 kg

DRUGS (1)
  1. BONIVA [Suspect]
     Indication: OSTEOPOROSIS
     Dosage: 150MG EVERY MONTH.
     Route: 048
     Dates: start: 20050809, end: 20060315

REACTIONS (1)
  - OSTEONECROSIS [None]
